FAERS Safety Report 5152132-0 (Version None)
Quarter: 2006Q4

REPORT INFORMATION
  Report Type: 
  Country: None (occurrence: None)
  Receive Date: 20061114
  Receipt Date: 20061114
  Transmission Date: 20070319
  Serious: No
  Sender: FDA-Public Use
  Company Number: None

PATIENT
  Age: 52 Year
  Sex: Female
  Weight: 63.9572 kg

DRUGS (1)
  1. CEFUROXIME [Suspect]
     Indication: SINUSITIS
     Dosage: QTY: 20 1 TABLET 2X/DAY PO
     Route: 048
     Dates: start: 20061108, end: 20061111

REACTIONS (4)
  - ASTHENIA [None]
  - FATIGUE [None]
  - RASH [None]
  - VISUAL DISTURBANCE [None]
